FAERS Safety Report 17611046 (Version 1)
Quarter: 2020Q2

REPORT INFORMATION
  Report Type: Spontaneous
  Country: US (occurrence: US)
  Receive Date: 20200401
  Receipt Date: 20200401
  Transmission Date: 20200713
  Serious: No
  Sender: FDA-Public Use
  Company Number: None

PATIENT
  Age: 63 Year
  Sex: Female

DRUGS (1)
  1. BUPRENORPHINE TRANSDERMAL SYSTEM [Suspect]
     Active Substance: BUPRENORPHINE
     Indication: NEUROPATHY PERIPHERAL
     Dosage: ?          OTHER STRENGTH:MCG/HOUR;QUANTITY:1 PATCH(ES);OTHER FREQUENCY:7 DAYS;?
     Route: 062

REACTIONS (4)
  - Product complaint [None]
  - Product adhesion issue [None]
  - Incorrect dose administered by device [None]
  - Pain [None]

NARRATIVE: CASE EVENT DATE: 20200324
